FAERS Safety Report 10206382 (Version 2)
Quarter: 2014Q2

REPORT INFORMATION
  Report Type: Spontaneous
  Country: BR (occurrence: BR)
  Receive Date: 20140530
  Receipt Date: 20140620
  Transmission Date: 20141212
  Serious: Yes (Hospitalization)
  Sender: FDA-Public Use
  Company Number: BR-ASTRAZENECA-2014SE36334

PATIENT
  Age: 56 Year
  Sex: Female
  Weight: 87 kg

DRUGS (14)
  1. METOPROLOL TARTRATE [Suspect]
     Indication: ARRHYTHMIA
     Route: 048
     Dates: start: 2009
  2. BRILINTA [Suspect]
     Indication: MYOCARDIAL INFARCTION
     Route: 048
     Dates: start: 2012
  3. METFORMIN [Suspect]
     Indication: DIABETES MELLITUS
     Dosage: TWO TIMES A DAY
     Route: 048
     Dates: start: 2009
  4. ATORVASTATIN CALCIUM [Concomitant]
     Indication: TYPE IIA HYPERLIPIDAEMIA
     Route: 048
     Dates: start: 2009
  5. PANTOPRAZOLE [Concomitant]
     Route: 048
     Dates: start: 2009
  6. LOSARTAN POTASSIUM [Concomitant]
     Route: 048
     Dates: start: 2009
  7. AMLODIPINE [Concomitant]
     Route: 048
     Dates: start: 2009
  8. DIAMICRON [Concomitant]
     Route: 048
     Dates: start: 2009
  9. MONOCORDIL [Concomitant]
     Route: 048
     Dates: start: 2009
  10. ZETIA [Concomitant]
     Route: 048
     Dates: start: 2009
  11. PREVELIP [Concomitant]
     Route: 048
     Dates: start: 2009
  12. ASA [Concomitant]
     Route: 048
     Dates: start: 2009
  13. TRYPTANOL [Concomitant]
     Route: 048
     Dates: start: 2009
  14. CLOPIDOGREL [Concomitant]

REACTIONS (2)
  - Coronary artery occlusion [Recovered/Resolved]
  - Macule [Not Recovered/Not Resolved]
